FAERS Safety Report 24672298 (Version 2)
Quarter: 2025Q2

REPORT INFORMATION
  Report Type: Spontaneous
  Country: US (occurrence: US)
  Receive Date: 20241127
  Receipt Date: 20250410
  Transmission Date: 20250716
  Serious: No
  Sender: SANOFI AVENTIS
  Company Number: US-SA-2024SA346601

PATIENT
  Age: 7 Year
  Sex: Male
  Weight: 24.218 kg

DRUGS (8)
  1. DUPIXENT [Suspect]
     Active Substance: DUPILUMAB
     Indication: Dermatitis atopic
     Route: 058
     Dates: start: 20241118, end: 20241118
  2. DUPIXENT [Suspect]
     Active Substance: DUPILUMAB
     Dosage: 300 MG, Q4W
     Route: 058
     Dates: start: 202412
  3. EUCERIN ECZEMA RELIEF [Concomitant]
  4. CEPHALEXIN [Concomitant]
     Active Substance: CEPHALEXIN
  5. EPIPEN [Concomitant]
     Active Substance: EPINEPHRINE
  6. VITAMINS [Concomitant]
     Active Substance: VITAMINS
  7. BENADRYL ALLERGY [Concomitant]
     Active Substance: DIPHENHYDRAMINE HYDROCHLORIDE
  8. CHILDREN^S MULTIVITAMIN [Concomitant]

REACTIONS (2)
  - Injection site swelling [Recovered/Resolved]
  - Dermatitis atopic [Unknown]

NARRATIVE: CASE EVENT DATE: 20241118
